FAERS Safety Report 14599634 (Version 1)
Quarter: 2018Q1

REPORT INFORMATION
  Report Type: Spontaneous
  Country: US (occurrence: US)
  Receive Date: 20180305
  Receipt Date: 20180305
  Transmission Date: 20180509
  Serious: Yes (Other)
  Sender: FDA-Public Use
  Company Number: US-REGENERON PHARMACEUTICALS, INC.-2018-16304

PATIENT

DRUGS (8)
  1. HCTZ [Concomitant]
     Active Substance: HYDROCHLOROTHIAZIDE
     Indication: PRODUCT USED FOR UNKNOWN INDICATION
  2. AVASTIN [Suspect]
     Active Substance: BEVACIZUMAB
     Dosage: UNK, EVERY 4-8 WEEKS, LEFT EYE
     Dates: start: 201612
  3. AVASTIN [Suspect]
     Active Substance: BEVACIZUMAB
     Dosage: UNK
     Dates: start: 201709, end: 201709
  4. BENAZEPRIL [Concomitant]
     Active Substance: BENAZEPRIL HYDROCHLORIDE
     Indication: PRODUCT USED FOR UNKNOWN INDICATION
  5. EYLEA [Suspect]
     Active Substance: AFLIBERCEPT
     Indication: MACULAR DEGENERATION
  6. EYLEA [Suspect]
     Active Substance: AFLIBERCEPT
     Dosage: UNK, EVERY 4-8 WEEKS
     Route: 031
     Dates: start: 2016, end: 2016
  7. GLIPIZIDE. [Concomitant]
     Active Substance: GLIPIZIDE
     Indication: PRODUCT USED FOR UNKNOWN INDICATION
  8. AVASTIN [Suspect]
     Active Substance: BEVACIZUMAB
     Indication: MACULAR DEGENERATION
     Dosage: UNK, RIGHT EYE
     Dates: start: 201612

REACTIONS (7)
  - Visual acuity reduced [Not Recovered/Not Resolved]
  - Fluid retention [Recovered/Resolved]
  - Fall [Unknown]
  - Cataract [Unknown]
  - Arthropod bite [Recovered/Resolved]
  - Wound secretion [Recovered/Resolved]
  - Neovascular age-related macular degeneration [Unknown]

NARRATIVE: CASE EVENT DATE: 2017
